FAERS Safety Report 6438129-9 (Version None)
Quarter: 2009Q4

REPORT INFORMATION
  Report Type: 
  Country: None (occurrence: None)
  Receive Date: 20091109
  Receipt Date: 20091027
  Transmission Date: 20100525
  Serious: Yes (Other)
  Sender: FDA-Public Use
  Company Number: PAR_03214_2009

PATIENT
  Age: 5 Year
  Sex: Male

DRUGS (2)
  1. IBUPROFEN [Suspect]
     Indication: PYREXIA
     Dosage: (DF)
  2. IBUPROFEN [Suspect]
     Indication: NASOPHARYNGITIS
     Dosage: (DF ORAL)
     Route: 048

REACTIONS (1)
  - DRUG ERUPTION [None]
